FAERS Safety Report 5645839-X (Version None)
Quarter: 2008Q1

REPORT INFORMATION
  Report Type: 
  Country: None (occurrence: None)
  Receive Date: 20080229
  Receipt Date: 20080220
  Transmission Date: 20080703
  Serious: Yes (Hospitalization)
  Sender: FDA-Public Use
  Company Number: FR-ABBOTT-08P-056-0439141-00

PATIENT
  Sex: Male

DRUGS (4)
  1. DEPAKENE [Suspect]
     Indication: DRUG USE FOR UNKNOWN INDICATION
     Route: 048
  2. CLOBAZAM [Suspect]
     Indication: DRUG USE FOR UNKNOWN INDICATION
     Route: 048
     Dates: end: 20080101
  3. CLOBAZAM [Suspect]
     Dosage: DOSE DECREASED NOS
     Route: 048
     Dates: start: 20080101
  4. ETHOSUXIMIDE [Suspect]
     Indication: DRUG USE FOR UNKNOWN INDICATION
     Route: 048
     Dates: start: 20070401, end: 20080129

REACTIONS (11)
  - ANAEMIA [None]
  - ANOREXIA [None]
  - BALANCE DISORDER [None]
  - BICYTOPENIA [None]
  - DYSPHAGIA [None]
  - GAIT DISTURBANCE [None]
  - GENERAL PHYSICAL HEALTH DETERIORATION [None]
  - HYPERSOMNIA [None]
  - LEUKOPENIA [None]
  - OTORRHOEA [None]
  - PLATELET COUNT DECREASED [None]
